FAERS Safety Report 7351252-X (Version None)
Quarter: 2011Q1

REPORT INFORMATION
  Report Type: 
  Country: None (occurrence: None)
  Receive Date: 20110314
  Receipt Date: 20110310
  Transmission Date: 20110831
  Serious: Yes (Hospitalization)
  Sender: FDA-Public Use
  Company Number: CO-PFIZER INC-2011054266

PATIENT
  Sex: Male

DRUGS (1)
  1. LYRICA [Suspect]
     Indication: NEURALGIA
     Dosage: 75 MG, UNK
     Route: 048
     Dates: start: 20110201

REACTIONS (3)
  - BACK PAIN [None]
  - SNEEZING [None]
  - PARALYSIS [None]
